FAERS Safety Report 16347815 (Version 1)
Quarter: 2019Q2

REPORT INFORMATION
  Report Type: Spontaneous
  Country: US (occurrence: US)
  Receive Date: 20190417
  Receipt Date: 20190417
  Transmission Date: 20190711
  Serious: Yes (Hospitalization)
  Sender: FDA-Public Use
  Company Number: None

PATIENT
  Age: 74 Year
  Sex: Female

DRUGS (3)
  1. FASLODEX [Concomitant]
     Active Substance: FULVESTRANT
  2. NATURE [Concomitant]
  3. IBRANCE [Suspect]
     Active Substance: PALBOCICLIB
     Indication: ANDROGENETIC ALOPECIA
     Dosage: MG :DAYS 1,8, AND ???  PO?
     Route: 048
     Dates: start: 20170915

REACTIONS (2)
  - Amaurosis fugax [None]
  - Cerebrovascular accident [None]
